FAERS Safety Report 8219415-9 (Version None)
Quarter: 2012Q1

REPORT INFORMATION
  Report Type: 
  Country: None (occurrence: None)
  Receive Date: 20120319
  Receipt Date: 20120314
  Transmission Date: 20120608
  Serious: Yes (Other)
  Sender: FDA-Public Use
  Company Number: US-PFIZER INC-2011274386

PATIENT
  Sex: Female

DRUGS (4)
  1. SEROQUEL [Concomitant]
     Indication: DEPRESSION
     Dosage: UNK
     Dates: start: 20080101, end: 20110101
  2. LORAZEPAM [Concomitant]
     Indication: ANXIETY
     Dosage: UNK
     Dates: start: 20070101
  3. ABILIFY [Concomitant]
     Indication: DEPRESSION
     Dosage: UNK
     Dates: start: 20070101
  4. CHANTIX [Suspect]
     Indication: SMOKING CESSATION THERAPY
     Dosage: STARTER PACK
     Dates: start: 20090324, end: 20090412

REACTIONS (4)
  - DEPRESSION [None]
  - SUICIDAL IDEATION [None]
  - BIPOLAR DISORDER [None]
  - MENTAL DISORDER [None]
